FAERS Safety Report 7234601-2 (Version None)
Quarter: 2011Q1

REPORT INFORMATION
  Report Type: 
  Country: None (occurrence: None)
  Receive Date: 20110120
  Receipt Date: 20110113
  Transmission Date: 20110831
  Serious: Yes (Hospitalization)
  Sender: FDA-Public Use
  Company Number: US-BIOGENIDEC-2010BI032634

PATIENT
  Sex: Female
  Weight: 47 kg

DRUGS (10)
  1. AVONEX [Suspect]
     Route: 030
     Dates: start: 20030628, end: 20030801
  2. AVONEX [Suspect]
     Route: 030
     Dates: start: 20030801, end: 20051001
  3. DARVOCET-N 100 [Concomitant]
     Indication: PAIN
     Route: 048
  4. AVONEX [Suspect]
     Indication: MULTIPLE SCLEROSIS
     Route: 030
     Dates: start: 20091201, end: 20101001
  5. AMBIEN CR (ZOLPIDEM, EXTENDED RELEASE) [Concomitant]
     Indication: MULTIPLE SCLEROSIS
     Route: 048
  6. PROVIGIL [Concomitant]
     Indication: MULTIPLE SCLEROSIS
  7. PLAQUENIL [Concomitant]
     Route: 048
  8. VALIUM [Concomitant]
     Route: 048
  9. CRESTOR [Concomitant]
     Indication: BLOOD CHOLESTEROL INCREASED
     Route: 048
  10. FLEXERIL [Concomitant]
     Indication: MULTIPLE SCLEROSIS
     Route: 048

REACTIONS (3)
  - NEPHROTIC SYNDROME [None]
  - FOCAL SEGMENTAL GLOMERULOSCLEROSIS [None]
  - SWELLING [None]
